FAERS Safety Report 23958250 (Version 2)
Quarter: 2024Q2

REPORT INFORMATION
  Report Type: Spontaneous
  Country: US (occurrence: US)
  Receive Date: 20240610
  Receipt Date: 20240628
  Transmission Date: 20240716
  Serious: No
  Sender: FDA-Public Use
  Company Number: US-JNJFOC-20240550148

PATIENT
  Age: 53 Year
  Sex: Female

DRUGS (1)
  1. WOMENS ROGAINE UNSCENTED [Suspect]
     Active Substance: MINOXIDIL
     Indication: Alopecia
     Dosage: HALF OF THE CAP
     Route: 061
     Dates: start: 2024, end: 2024

REACTIONS (3)
  - Alopecia [Recovering/Resolving]
  - Product residue present [Recovering/Resolving]
  - Product contamination physical [Unknown]

NARRATIVE: CASE EVENT DATE: 20240101
